FAERS Safety Report 10597559 (Version 1)
Quarter: 2014Q4

REPORT INFORMATION
  Report Type: Spontaneous
  Country: US (occurrence: None)
  Receive Date: 20141120
  Receipt Date: 20141120
  Transmission Date: 20150529
  Serious: No
  Sender: FDA-Public Use
  Company Number: None

PATIENT
  Age: 70 Year
  Sex: Male
  Weight: 70.76 kg

DRUGS (7)
  1. CIPROFLOXACIN HCL [Suspect]
     Active Substance: CIPROFLOXACIN HYDROCHLORIDE
     Indication: EAR INFECTION
     Dosage: 500 MG TAB ?I^VE BEEN PRESCRIBED CIPRO 500 MG 3 TIMES SINCE THE BEGINNING OF THE YEAR CIPRODEX 4X
  2. CIPROFLOXACIN HCL [Suspect]
     Active Substance: CIPROFLOXACIN HYDROCHLORIDE
     Indication: PROSTATIC DISORDER
     Dosage: 500 MG TAB ?I^VE BEEN PRESCRIBED CIPRO 500 MG 3 TIMES SINCE THE BEGINNING OF THE YEAR CIPRODEX 4X
  3. PRILOSEC/SYNTHROID [Concomitant]
  4. TRANOPROST [Concomitant]
  5. SIMBRINZA [Concomitant]
     Active Substance: BRIMONIDINE TARTRATE\BRINZOLAMIDE
  6. ADVIL [Concomitant]
     Active Substance: IBUPROFEN
  7. ASPIRIN. [Concomitant]
     Active Substance: ASPIRIN

REACTIONS (1)
  - Muscular weakness [None]
